FAERS Safety Report 6548939-5 (Version None)
Quarter: 2010Q1

REPORT INFORMATION
  Report Type: 
  Country: None (occurrence: None)
  Receive Date: 20100125
  Receipt Date: 20100115
  Transmission Date: 20100710
  Serious: Yes (Death)
  Sender: FDA-Public Use
  Company Number: US-BIOGENIDEC-2010BI000135

PATIENT
  Age: 70 Year
  Sex: Female

DRUGS (8)
  1. AVONEX [Suspect]
     Indication: MULTIPLE SCLEROSIS
     Route: 030
     Dates: start: 20090501
  2. AVONEX [Suspect]
     Route: 030
  3. PROZAC [Concomitant]
  4. KLONOPIN [Concomitant]
  5. BACLOFEN [Concomitant]
  6. DEPAKOTE ER [Concomitant]
  7. GABAPENTIN [Concomitant]
  8. BISOPROLOL FUMARATE AND HYDROCHLOROTHIAZIDE [Concomitant]

REACTIONS (1)
  - CEREBROVASCULAR ACCIDENT [None]
